FAERS Safety Report 4825572-4 (Version None)
Quarter: 2005Q4

REPORT INFORMATION
  Report Type: 
  Country: None (occurrence: None)
  Receive Date: 20051111
  Receipt Date: 20050916
  Transmission Date: 20060501
  Serious: No
  Sender: FDA-Public Use
  Company Number: US-GLAXOSMITHKLINE-A0574523A

PATIENT
  Age: 61 Year
  Sex: Male

DRUGS (1)
  1. AVODART [Suspect]
     Indication: BENIGN PROSTATIC HYPERPLASIA
     Dosage: .5MG PER DAY
     Route: 048

REACTIONS (5)
  - EJACULATION DISORDER [None]
  - ERECTILE DYSFUNCTION [None]
  - LIBIDO DECREASED [None]
  - PRURITUS [None]
  - RASH GENERALISED [None]
